FAERS Safety Report 4563274-2 (Version None)
Quarter: 2005Q1

REPORT INFORMATION
  Report Type: 
  Country: None (occurrence: None)
  Receive Date: 20050125
  Receipt Date: 20050112
  Transmission Date: 20050727
  Serious: Yes (Hospitalization)
  Sender: FDA-Public Use
  Company Number: 2005015498

PATIENT
  Age: 73 Year
  Sex: Female

DRUGS (5)
  1. SOLU-MEDROL [Suspect]
     Indication: SMALL INTESTINE CARCINOMA
     Dosage: 180 MG (EVERY DAY), INTRAVENOUS
     Route: 042
     Dates: start: 20040727
  2. CYCLOPHOSPHAMIDE [Suspect]
     Indication: SMALL INTESTINE CARCINOMA
     Dosage: 1370 MG (EVERY DAY), INTRAVENOUS
     Route: 042
     Dates: start: 20040727
  3. DOXORUBICIN HYDROCHLORIDE [Suspect]
     Indication: SMALL INTESTINE CARCINOMA
     Dosage: 90 MG (EVERY DAY), INTRAVENOUS
     Route: 042
     Dates: start: 20040727
  4. VINCRISTINE [Suspect]
     Indication: SMALL INTESTINE CARCINOMA
     Dosage: 2 MG (EVERY DAY), INTRAVENOUS
     Route: 042
     Dates: start: 20040727
  5. RITUXIMAB (RITUXIMAB) [Suspect]
     Indication: SMALL INTESTINE CARCINOMA
     Dosage: 685 MG (EVERY DAY), INTRAVENOUS
     Route: 042
     Dates: start: 20040727

REACTIONS (2)
  - NEUTROPENIA [None]
  - WHITE BLOOD CELL COUNT DECREASED [None]
